FAERS Safety Report 4743514-7 (Version None)
Quarter: 2005Q3

REPORT INFORMATION
  Report Type: 
  Country: None (occurrence: None)
  Receive Date: 20050809
  Receipt Date: 20050727
  Transmission Date: 20060218
  Serious: Yes (Other)
  Sender: FDA-Public Use
  Company Number: 2005109530

PATIENT
  Age: 30 Year
  Sex: Female

DRUGS (1)
  1. DIFLUCAN [Suspect]
     Indication: FUNGAL INFECTION
     Dosage: (150 MG), ORAL
     Route: 048
     Dates: start: 20040701, end: 20040701

REACTIONS (3)
  - ABORTION INDUCED [None]
  - DRUG EXPOSURE DURING PREGNANCY [None]
  - PREGNANCY [None]
